FAERS Safety Report 7294162-9 (Version None)
Quarter: 2011Q1

REPORT INFORMATION
  Report Type: 
  Country: None (occurrence: None)
  Receive Date: 20110215
  Receipt Date: 20110210
  Transmission Date: 20110831
  Serious: Yes (Other)
  Sender: FDA-Public Use
  Company Number: US-PFIZER INC-2010079805

PATIENT
  Sex: Female
  Weight: 80.726 kg

DRUGS (5)
  1. NEURONTIN [Suspect]
     Indication: MUSCULOSKELETAL PAIN
  2. PRAVASTATIN [Concomitant]
     Indication: BLOOD CHOLESTEROL INCREASED
  3. DICLOFENAC [Concomitant]
     Indication: PAIN IN EXTREMITY
  4. NEURONTIN [Suspect]
     Indication: PAIN IN EXTREMITY
  5. NEURONTIN [Suspect]
     Indication: NECK PAIN
     Dosage: 800 MG, DAILY
     Route: 048
     Dates: start: 20100618, end: 20100618

REACTIONS (2)
  - ACTIVITIES OF DAILY LIVING IMPAIRED [None]
  - DYSSTASIA [None]
